FAERS Safety Report 4978517-0 (Version None)
Quarter: 2006Q2

REPORT INFORMATION
  Report Type: 
  Country: None (occurrence: None)
  Receive Date: 20060414
  Receipt Date: 20060405
  Transmission Date: 20061013
  Serious: Yes (Other)
  Sender: FDA-Public Use
  Company Number: S05-USA-05006-02

PATIENT
  Sex: Male
  Weight: 4.03 kg

DRUGS (4)
  1. LEXAPRO [Suspect]
     Indication: ANXIETY
     Dosage: 10 MG QD TRANSPLACENTAL
     Route: 064
     Dates: end: 20050101
  2. LEXAPRO [Suspect]
     Indication: ANXIETY
     Dosage: 10 MG QD TRANSPLACENTAL
     Route: 064
     Dates: start: 20050428, end: 20051101
  3. LEXAPRO [Suspect]
     Indication: ANXIETY
     Dosage: 10 MG QD BF
     Route: 063
     Dates: start: 20051101, end: 20051121
  4. PRENATAL VITAMINS [Concomitant]

REACTIONS (7)
  - CAESAREAN SECTION [None]
  - DRUG EXPOSURE DURING PREGNANCY [None]
  - DRUG EXPOSURE VIA BREAST MILK [None]
  - HYPERBILIRUBINAEMIA NEONATAL [None]
  - HYPERTENSION NEONATAL [None]
  - HYPOGLYCAEMIA NEONATAL [None]
  - LARGE FOR DATES BABY [None]
